FAERS Safety Report 7609394-7 (Version None)
Quarter: 2011Q3

REPORT INFORMATION
  Report Type: 
  Country: None (occurrence: None)
  Receive Date: 20110714
  Receipt Date: 20110711
  Transmission Date: 20111222
  Serious: Yes (Death)
  Sender: FDA-Public Use
  Company Number: TH-PFIZER INC-2011090462

PATIENT
  Age: 55 Year
  Sex: Male

DRUGS (3)
  1. FOLIC ACID [Concomitant]
     Indication: SUPPLEMENTATION THERAPY
  2. FBC [Concomitant]
     Indication: SUPPLEMENTATION THERAPY
  3. SUTENT [Suspect]
     Indication: GASTROINTESTINAL STROMAL TUMOUR
     Dosage: 50 MG, 1X/DAY
     Route: 048
     Dates: start: 20100701

REACTIONS (2)
  - GASTROINTESTINAL STROMAL TUMOUR [None]
  - DISEASE PROGRESSION [None]
